FAERS Safety Report 5737206-5 (Version None)
Quarter: 2008Q2

REPORT INFORMATION
  Report Type: 
  Country: None (occurrence: None)
  Receive Date: 20080512
  Receipt Date: 20080512
  Transmission Date: 20081010
  Serious: Yes (Hospitalization)
  Sender: FDA-Public Use
  Company Number: None

PATIENT
  Age: 61 Year
  Sex: Male
  Weight: 143 kg

DRUGS (3)
  1. EXENATIDE [Suspect]
     Indication: DIABETES MELLITUS
     Dosage: 10MCG BID SQ
     Route: 058
     Dates: start: 20070927, end: 20080202
  2. EXENATIDE [Suspect]
     Indication: OBESITY
     Dosage: 10MCG BID SQ
     Route: 058
     Dates: start: 20070927, end: 20080202
  3. SIMVASTATIN [Suspect]
     Indication: HYPERLIPIDAEMIA
     Dosage: 40MG HS PO
     Route: 048
     Dates: start: 20080524

REACTIONS (2)
  - NAUSEA [None]
  - PANCREATITIS ACUTE [None]
